FAERS Safety Report 11718639 (Version 3)
Quarter: 2015Q4

REPORT INFORMATION
  Report Type: Spontaneous
  Country: US (occurrence: US)
  Receive Date: 20151110
  Receipt Date: 20151216
  Transmission Date: 20160304
  Serious: Yes (Hospitalization)
  Sender: FDA-Public Use
  Company Number: US-BEH-2015055487

PATIENT
  Age: 19 Year
  Sex: Female
  Weight: 148 kg

DRUGS (29)
  1. LISINOPRIL. [Concomitant]
     Active Substance: LISINOPRIL
  2. METOCLOPRAMIDE. [Concomitant]
     Active Substance: METOCLOPRAMIDE
  3. METFORMIN [Concomitant]
     Active Substance: METFORMIN HYDROCHLORIDE
  4. PROMETHAZINE [Concomitant]
     Active Substance: PROMETHAZINE\PROMETHAZINE HYDROCHLORIDE
  5. SERTRALINE [Concomitant]
     Active Substance: SERTRALINE HYDROCHLORIDE
  6. EPIPEN [Concomitant]
     Active Substance: EPINEPHRINE
  7. CEFDINIR. [Concomitant]
     Active Substance: CEFDINIR
  8. SPRINTEC [Concomitant]
     Active Substance: ETHINYL ESTRADIOL\NORGESTIMATE
  9. CLONIDINE. [Concomitant]
     Active Substance: CLONIDINE
  10. MOTRIN [Concomitant]
     Active Substance: IBUPROFEN
  11. ACETAMINOPHEN. [Concomitant]
     Active Substance: ACETAMINOPHEN
  12. PREDNISONE. [Concomitant]
     Active Substance: PREDNISONE
  13. MIRALAX [Concomitant]
     Active Substance: POLYETHYLENE GLYCOL 3350
  14. TRAZODONE [Concomitant]
     Active Substance: TRAZODONE HYDROCHLORIDE
  15. ADVAIR HFA [Concomitant]
     Active Substance: FLUTICASONE PROPIONATE\SALMETEROL XINAFOATE
  16. HIZENTRA [Suspect]
     Active Substance: HUMAN IMMUNOGLOBULIN G
     Indication: HYPOGAMMAGLOBULINAEMIA
     Dosage: 4 GM 20 ML VIAL
     Route: 058
     Dates: start: 20110914
  17. LORAZEPAM. [Concomitant]
     Active Substance: LORAZEPAM
  18. DDAVP [Concomitant]
     Active Substance: DESMOPRESSIN ACETATE
  19. VITAMIN C [Concomitant]
     Active Substance: ASCORBIC ACID
  20. ONDANSETRON [Concomitant]
     Active Substance: ONDANSETRON
  21. DIPHENHYDRAMINE. [Concomitant]
     Active Substance: DIPHENHYDRAMINE
  22. VITAMIN B2 [Concomitant]
     Active Substance: RIBOFLAVIN
  23. NITROFURANTOIN. [Concomitant]
     Active Substance: NITROFURANTOIN
  24. OMEPRAZOLE. [Concomitant]
     Active Substance: OMEPRAZOLE
  25. FLONASE [Concomitant]
     Active Substance: FLUTICASONE PROPIONATE
  26. HIZENTRA [Suspect]
     Active Substance: HUMAN IMMUNOGLOBULIN G
     Indication: HYPOGAMMAGLOBULINAEMIA
     Dosage: 4 GM 20 ML VIAL
     Route: 058
     Dates: start: 20110914
  27. LIDOCAINE/PRILOCAINE [Concomitant]
  28. ABILIFY [Concomitant]
     Active Substance: ARIPIPRAZOLE
  29. ALBUTEROL. [Concomitant]
     Active Substance: ALBUTEROL

REACTIONS (5)
  - Vomiting [Recovered/Resolved]
  - Aspiration [Recovered/Resolved]
  - Heart rate increased [Recovered/Resolved]
  - Escherichia infection [Recovered/Resolved]
  - Escherichia urinary tract infection [Recovered/Resolved]

NARRATIVE: CASE EVENT DATE: 20151030
